FAERS Safety Report 8230932-8 (Version None)
Quarter: 2012Q1

REPORT INFORMATION
  Report Type: 
  Country: None (occurrence: None)
  Receive Date: 20120323
  Receipt Date: 20120314
  Transmission Date: 20120608
  Serious: Yes (Other)
  Sender: FDA-Public Use
  Company Number: US-BAYER-2012-025017

PATIENT
  Sex: Female

DRUGS (1)
  1. MIRENA [Suspect]
     Dosage: UNK

REACTIONS (6)
  - NAUSEA [None]
  - VAGINAL HAEMORRHAGE [None]
  - COITAL BLEEDING [None]
  - MEDICAL DEVICE COMPLICATION [None]
  - METRORRHAGIA [None]
  - HEADACHE [None]
